FAERS Safety Report 6303493-8 (Version None)
Quarter: 2009Q3

REPORT INFORMATION
  Report Type: 
  Country: None (occurrence: None)
  Receive Date: 20090810
  Receipt Date: 20090806
  Transmission Date: 20100115
  Serious: Yes (Death, Hospitalization)
  Sender: FDA-Public Use
  Company Number: PHEH2008US11582

PATIENT
  Sex: Male
  Weight: 130.16 kg

DRUGS (16)
  1. GLEEVEC [Suspect]
     Indication: CHRONIC MYELOID LEUKAEMIA
     Dosage: 400 MG, QD
     Route: 048
     Dates: start: 20080331
  2. ADVAIR DISKUS 100/50 [Concomitant]
     Dosage: 500 MCG-50 MCG 1 PUFF 2 TIMES A DAY
  3. ALLOPURINOL [Concomitant]
     Dosage: 300 MG, QD
     Route: 048
  4. AMARYL [Concomitant]
     Dosage: 2 MG 1 IN AM, 1 IN PM
     Route: 048
  5. CARDIZEM CD [Concomitant]
     Dosage: 240 MG, QD
     Route: 048
  6. COUMADIN [Concomitant]
     Dosage: 5 MG, QD
     Route: 048
  7. FLOMAX [Concomitant]
     Dosage: 0.4 MG, QD
     Route: 048
  8. GLYCOLAX [Concomitant]
     Dosage: 1 TABLESPOON, TAKE EVERY DAY
     Route: 048
  9. K-DUR [Concomitant]
     Dosage: 20 MEQ 2 IN AM, 1 IN PM
  10. LANOXIN [Concomitant]
     Dosage: 0.25 MG, QD
     Route: 048
  11. LASIX [Concomitant]
     Dosage: 40 MG 2 IN AM, 2 IN PM
     Route: 048
  12. LISINOPRIL [Concomitant]
     Dosage: 5 MG, QD
     Route: 048
  13. ALPRAZOLAM [Concomitant]
     Dosage: 0.25 MG, QD
  14. PLAVIX [Concomitant]
     Dosage: 75 MG, QD
     Route: 048
  15. PRILOSEC [Concomitant]
     Dosage: 20 MG, QD
  16. ZOCOR [Concomitant]
     Dosage: 20 MG, QD
     Route: 048

REACTIONS (6)
  - BLOOD CREATININE INCREASED [None]
  - BLOOD POTASSIUM INCREASED [None]
  - CARDIOACTIVE DRUG LEVEL INCREASED [None]
  - DEATH [None]
  - RENAL FAILURE [None]
  - UNRESPONSIVE TO STIMULI [None]
